FAERS Safety Report 14569586 (Version 1)
Quarter: 2018Q1

REPORT INFORMATION
  Report Type: Spontaneous
  Country: US (occurrence: US)
  Receive Date: 20180224
  Receipt Date: 20180224
  Transmission Date: 20180509
  Serious: Yes (Other)
  Sender: FDA-Public Use
  Company Number: US-ROCHE-2076339

PATIENT
  Sex: Female

DRUGS (5)
  1. KLONOPIN [Suspect]
     Active Substance: CLONAZEPAM
     Dosage: ONGOING: YES
     Route: 065
  2. CLONIDINE. [Concomitant]
     Active Substance: CLONIDINE
     Dosage: ONGOING: YES
     Route: 065
  3. KLONOPIN [Suspect]
     Active Substance: CLONAZEPAM
     Dosage: ONGOING: YES
     Route: 065
  4. PAXIL [Concomitant]
     Active Substance: PAROXETINE HYDROCHLORIDE
     Dosage: ONGOING: YES
     Route: 065
  5. KLONOPIN [Suspect]
     Active Substance: CLONAZEPAM
     Indication: ANXIETY
     Dosage: ONGOING: YES
     Route: 065

REACTIONS (4)
  - Heart rate irregular [Unknown]
  - Insomnia [Unknown]
  - Anxiety [Unknown]
  - Dyspnoea [Unknown]
